FAERS Safety Report 7764466-1 (Version None)
Quarter: 2011Q3

REPORT INFORMATION
  Report Type: 
  Country: None (occurrence: None)
  Receive Date: 20110921
  Receipt Date: 20110919
  Transmission Date: 20111222
  Serious: No
  Sender: FDA-Public Use
  Company Number: US-PFIZER INC-2011222824

PATIENT
  Sex: Female

DRUGS (2)
  1. ZOLOFT [Suspect]
     Dosage: 50 MG, DAILY
     Dates: start: 20110101, end: 20110101
  2. ZOLOFT [Suspect]
     Dosage: 25 MG, DAILY
     Dates: start: 20110101, end: 20110901

REACTIONS (5)
  - DIZZINESS [None]
  - DRUG WITHDRAWAL SYNDROME [None]
  - EYE PAIN [None]
  - EYE MOVEMENT DISORDER [None]
  - FATIGUE [None]
